FAERS Safety Report 4554097-9 (Version None)
Quarter: 2005Q1

REPORT INFORMATION
  Report Type: 
  Country: None (occurrence: None)
  Receive Date: 20050118
  Receipt Date: 20041019
  Transmission Date: 20050727
  Serious: Yes (Death)
  Sender: FDA-Public Use
  Company Number: US-MERCK-0410USA02873

PATIENT
  Age: 58 Year
  Sex: Female
  Weight: 50 kg

DRUGS (9)
  1. VIOXX [Suspect]
     Route: 048
  2. AMITRIPTYLINE HYDROCHLORIDE [Concomitant]
     Route: 065
  3. METHADONE HYDROCHLORIDE [Concomitant]
     Route: 065
  4. OXYCODONE [Concomitant]
     Route: 065
  5. AMBIEN [Concomitant]
     Route: 065
  6. NEURONTIN [Concomitant]
     Route: 065
  7. [THERAPY UNSPECIFIED] [Concomitant]
     Indication: DEPENDENCE
     Route: 065
  8. [THERAPY UNSPECIFIED] [Concomitant]
     Indication: ANALGESIC EFFECT
     Route: 065
  9. TIZANIDINE HYDROCHLORIDE [Concomitant]
     Route: 065

REACTIONS (9)
  - ARTERIOSCLEROSIS [None]
  - CALCINOSIS [None]
  - CONTUSION [None]
  - CORONARY ARTERY DISEASE [None]
  - CORONARY ARTERY STENOSIS [None]
  - EXCORIATION [None]
  - PULMONARY CONGESTION [None]
  - PULMONARY OEDEMA [None]
  - SUDDEN DEATH [None]
